FAERS Safety Report 6230813-5 (Version None)
Quarter: 2009Q2

REPORT INFORMATION
  Report Type: 
  Country: None (occurrence: None)
  Receive Date: 20090611
  Receipt Date: 20090531
  Transmission Date: 20091009
  Serious: No
  Sender: FDA-Public Use
  Company Number: 2008-189081-NL

PATIENT
  Age: 42 Year
  Sex: Female

DRUGS (7)
  1. NUVARING [Suspect]
     Indication: CONTRACEPTION
     Dosage: DF
     Dates: start: 20081101, end: 20090101
  2. CANDESARTAN CILEXETIL [Concomitant]
  3. CYCLOSPORINE [Concomitant]
  4. MYCOPHENOLATE SODIUM [Concomitant]
  5. CALCITRIOL [Concomitant]
  6. CIPROFLOXACIN [Concomitant]
  7. TORASEMIDE [Concomitant]

REACTIONS (3)
  - BLOOD PRESSURE INCREASED [None]
  - DIZZINESS [None]
  - HEADACHE [None]
